FAERS Safety Report 13342113 (Version 2)
Quarter: 2017Q1

REPORT INFORMATION
  Report Type: Spontaneous
  Country: DE (occurrence: DE)
  Receive Date: 20170316
  Receipt Date: 20170327
  Transmission Date: 20170428
  Serious: Yes (Other)
  Sender: FDA-Public Use
  Company Number: DE-BRISTOL-MYERS SQUIBB COMPANY-BMS-2017-021310

PATIENT
  Sex: Male

DRUGS (1)
  1. ELIQUIS [Suspect]
     Active Substance: APIXABAN
     Indication: PULMONARY EMBOLISM
     Dosage: 5 MG, BID
     Route: 065
     Dates: start: 201604

REACTIONS (5)
  - Dental operation [Unknown]
  - Tooth disorder [Unknown]
  - Meniscus operation [Unknown]
  - Haemorrhage [Unknown]
  - Meniscus injury [Unknown]

NARRATIVE: CASE EVENT DATE: 201612
